FAERS Safety Report 18015654 (Version 1)
Quarter: 2020Q3

REPORT INFORMATION
  Report Type: Spontaneous
  Country: CA (occurrence: CA)
  Receive Date: 20200713
  Receipt Date: 20200713
  Transmission Date: 20201103
  Serious: Yes (Other)
  Sender: FDA-Public Use
  Company Number: CA-TEVA-2020-CA-1799375

PATIENT
  Age: 25 Year
  Sex: Male

DRUGS (7)
  1. QUETIAPINE. [Suspect]
     Active Substance: QUETIAPINE
     Indication: SCHIZOPHRENIA
     Route: 048
  2. CHLORPROMAZINE. [Suspect]
     Active Substance: CHLORPROMAZINE
     Indication: SCHIZOPHRENIA
     Route: 048
  3. RISPERDAL [Suspect]
     Active Substance: RISPERIDONE
     Indication: SCHIZOPHRENIA
     Route: 048
  4. SAPHRIS [Suspect]
     Active Substance: ASENAPINE MALEATE
     Indication: SCHIZOPHRENIA
     Route: 048
  5. HALOPERIDOL. [Suspect]
     Active Substance: HALOPERIDOL
     Indication: SCHIZOPHRENIA
     Route: 048
  6. ZYPREXA [Suspect]
     Active Substance: OLANZAPINE
     Indication: SCHIZOPHRENIA
     Route: 048
  7. ABILIFY [Suspect]
     Active Substance: ARIPIPRAZOLE
     Indication: SCHIZOPHRENIA
     Route: 048

REACTIONS (4)
  - Suicide attempt [Unknown]
  - Sedation [Unknown]
  - Therapy non-responder [Unknown]
  - Emotional poverty [Unknown]
